FAERS Safety Report 6742603-5 (Version None)
Quarter: 2010Q2

REPORT INFORMATION
  Report Type: 
  Country: None (occurrence: None)
  Receive Date: 20100524
  Receipt Date: 20100412
  Transmission Date: 20101027
  Serious: No
  Sender: FDA-Public Use
  Company Number: ACO_00691_2010

PATIENT
  Sex: Female
  Weight: 63.5036 kg

DRUGS (3)
  1. AMPYRA [Suspect]
     Indication: MULTIPLE SCLEROSIS
     Dosage: (10 MG BID ORAL)
     Route: 048
     Dates: start: 20100403
  2. VALIUM [Concomitant]
  3. BACLOFEN [Concomitant]

REACTIONS (7)
  - ASTHENIA [None]
  - BALANCE DISORDER [None]
  - CONDITION AGGRAVATED [None]
  - DIZZINESS [None]
  - GAIT DISTURBANCE [None]
  - POOR QUALITY SLEEP [None]
  - SLUGGISHNESS [None]
